FAERS Safety Report 24763806 (Version 1)
Quarter: 2024Q4

REPORT INFORMATION
  Report Type: Report from Study
  Country: AR (occurrence: AR)
  Receive Date: 20241223
  Receipt Date: 20241223
  Transmission Date: 20250114
  Serious: Yes (Hospitalization, Other)
  Sender: ABBVIE
  Company Number: AR-ABBVIE-6055735

PATIENT
  Age: 71 Year
  Sex: Female

DRUGS (1)
  1. RINVOQ [Suspect]
     Active Substance: UPADACITINIB
     Indication: Rheumatoid arthritis
     Dosage: 15 MILLIGRAM
     Route: 048
     Dates: start: 20200101

REACTIONS (1)
  - Pleural effusion [Unknown]

NARRATIVE: CASE EVENT DATE: 20241201
